FAERS Safety Report 9284972 (Version 2)
Quarter: 2013Q2

REPORT INFORMATION
  Report Type: Spontaneous
  Country: ES (occurrence: ES)
  Receive Date: 20130513
  Receipt Date: 20130607
  Transmission Date: 20140414
  Serious: Yes (Hospitalization, Other)
  Sender: FDA-Public Use
  Company Number: PHHY2013ES045155

PATIENT
  Age: 25 Year
  Sex: Female

DRUGS (4)
  1. LEPONEX [Suspect]
     Indication: SCHIZOPHRENIA
     Dosage: 150 MG DAILY
     Route: 048
     Dates: start: 201212, end: 20130506
  2. ABILIFY [Concomitant]
     Dosage: 10 MG DAILY
     Route: 048
  3. FLUOXETIN [Concomitant]
     Dosage: 20 MG DAILY
     Route: 048
  4. IUD NOS [Concomitant]
     Indication: CONTRACEPTION
     Dosage: UNK

REACTIONS (3)
  - Ischaemic stroke [Recovering/Resolving]
  - Hemiplegia [Unknown]
  - Aphasia [Unknown]
